FAERS Safety Report 5731518-7 (Version None)
Quarter: 2008Q2

REPORT INFORMATION
  Report Type: 
  Country: None (occurrence: None)
  Receive Date: 20080506
  Receipt Date: 20080506
  Transmission Date: 20081010
  Serious: Yes (Hospitalization)
  Sender: FDA-Public Use
  Company Number: None

PATIENT
  Sex: Female

DRUGS (7)
  1. REVLIMID [Suspect]
     Indication: MYELODYSPLASTIC SYNDROME
     Dosage: 5MG DAILY X21D/28D PO
     Route: 048
     Dates: start: 20070914, end: 20080107
  2. ACETAMINOPHEN AND HYDROCODONE BITARTRATE [Concomitant]
  3. ATENOL [Concomitant]
  4. LIPITOR [Concomitant]
  5. LEVOTHROID [Concomitant]
  6. FUROSEMIDE [Concomitant]
  7. K-TAB [Concomitant]

REACTIONS (5)
  - ACUTE MYOCARDIAL INFARCTION [None]
  - ANAEMIA [None]
  - AORTIC VALVE REPLACEMENT [None]
  - DISEASE PROGRESSION [None]
  - MYELODYSPLASTIC SYNDROME [None]
